FAERS Safety Report 9900817 (Version 4)
Quarter: 2014Q2

REPORT INFORMATION
  Report Type: Spontaneous
  Country: PT (occurrence: PT)
  Receive Date: 20140217
  Receipt Date: 20140404
  Transmission Date: 20141212
  Serious: Yes (Hospitalization, Other)
  Sender: FDA-Public Use
  Company Number: PT-MERCK-1402PRT006953

PATIENT
  Age: 2 Year
  Sex: Male
  Weight: 14 kg

DRUGS (1)
  1. SINGULAIR [Suspect]
     Indication: PROPHYLAXIS
     Dosage: 4 MG, QD
     Route: 048
     Dates: start: 20130101, end: 20140210

REACTIONS (9)
  - Excessive eye blinking [Recovered/Resolved]
  - Tic [Recovered/Resolved]
  - Bronchiolitis [Not Recovered/Not Resolved]
  - Agitation [Recovered/Resolved]
  - Aggression [Recovered/Resolved]
  - Increased appetite [Not Recovered/Not Resolved]
  - Conjunctivitis allergic [Recovering/Resolving]
  - Irritability [Not Recovered/Not Resolved]
  - Off label use [Unknown]
